FAERS Safety Report 13819262 (Version 3)
Quarter: 2017Q3

REPORT INFORMATION
  Report Type: Report from Study
  Country: US (occurrence: US)
  Receive Date: 20170801
  Receipt Date: 20170907
  Transmission Date: 20171127
  Serious: Yes (Hospitalization, Other)
  Sender: FDA-Public Use
  Company Number: US-GILEAD-2017-0286061

PATIENT
  Age: 83 Year
  Sex: Male
  Weight: 89 kg

DRUGS (29)
  1. ADEMPAS [Concomitant]
     Active Substance: RIOCIGUAT
  2. COLACE [Concomitant]
     Active Substance: DOCUSATE SODIUM
  3. COLCRYS [Concomitant]
     Active Substance: COLCHICINE
  4. PREDNISONE. [Concomitant]
     Active Substance: PREDNISONE
  5. MORPHINE SULFATE. [Concomitant]
     Active Substance: MORPHINE SULFATE
  6. AYR SALINE [Concomitant]
  7. MAGNESIUM OXIDE. [Concomitant]
     Active Substance: MAGNESIUM OXIDE
  8. XOPENEX [Concomitant]
     Active Substance: LEVALBUTEROL HYDROCHLORIDE
  9. SPIRONOLACTONE. [Concomitant]
     Active Substance: SPIRONOLACTONE
  10. VITAMIN D3 [Concomitant]
     Active Substance: CHOLECALCIFEROL
  11. STIOLTO RESPIMAT [Concomitant]
     Active Substance: OLODATEROL HYDROCHLORIDE\TIOTROPIUM BROMIDE MONOHYDRATE
  12. AMBRISENTAN [Suspect]
     Active Substance: AMBRISENTAN
     Indication: CARDIAC FAILURE CONGESTIVE
  13. METOLAZONE. [Concomitant]
     Active Substance: METOLAZONE
  14. SENNA PLUS                         /00142201/ [Concomitant]
  15. TOPROL XL [Concomitant]
     Active Substance: METOPROLOL SUCCINATE
  16. TORSEMIDE. [Concomitant]
     Active Substance: TORSEMIDE
  17. TYLENOL [Concomitant]
     Active Substance: ACETAMINOPHEN
  18. COUMADIN [Concomitant]
     Active Substance: WARFARIN SODIUM
  19. TYVASO [Concomitant]
     Active Substance: TREPROSTINIL
  20. BROVANA [Concomitant]
     Active Substance: ARFORMOTEROL TARTRATE
  21. CLARITIN [Concomitant]
     Active Substance: LORATADINE
  22. POTASSIUM CHLORIDE. [Concomitant]
     Active Substance: POTASSIUM CHLORIDE
  23. AMBRISENTAN [Suspect]
     Active Substance: AMBRISENTAN
     Indication: PULMONARY ARTERIAL HYPERTENSION
     Dosage: 5 MG, QD
     Route: 048
     Dates: start: 20120323
  24. AMBRISENTAN [Suspect]
     Active Substance: AMBRISENTAN
     Indication: ATRIAL SEPTAL DEFECT REPAIR
  25. AMBRISENTAN [Suspect]
     Active Substance: AMBRISENTAN
     Indication: HEART DISEASE CONGENITAL
  26. B-COMPLEX                          /00003501/ [Concomitant]
     Active Substance: CYANOCOBALAMIN\DEXPANTHENOL\NIACINAMIDE\PYRIDOXINE HYDROCHLORIDE\RIBOFLAVIN 5^-PHOSPHATE SODIUM\THIAMINE HYDROCHLORIDE\VITAMIN B COMPLEX
  27. PROAIR HFA [Concomitant]
     Active Substance: ALBUTEROL SULFATE
  28. SYMBICORT [Concomitant]
     Active Substance: BUDESONIDE\FORMOTEROL FUMARATE DIHYDRATE
  29. WARFARIN [Concomitant]
     Active Substance: WARFARIN

REACTIONS (5)
  - Urine output decreased [Recovered/Resolved]
  - Hypotension [Recovered/Resolved]
  - Renal disorder [Not Recovered/Not Resolved]
  - Dyspnoea [Not Recovered/Not Resolved]
  - Oxygen saturation decreased [Unknown]

NARRATIVE: CASE EVENT DATE: 20170719
